FAERS Safety Report 8942626 (Version 1)
Quarter: 2012Q4

REPORT INFORMATION
  Report Type: 
  Country: US (occurrence: US)
  Receive Date: 20121204
  Receipt Date: 20121204
  Transmission Date: 20130627
  Serious: Yes (Other)
  Sender: FDA-Public Use
  Company Number: US-BAYER-2012-124544

PATIENT

DRUGS (3)
  1. ALEVE CAPLET/TABLET,MIDOL EXTENDED RELIEF CAPLET [Suspect]
     Indication: SORES MOUTH
  2. ORAJEL [Concomitant]
  3. ANBESOL NOS [Concomitant]

REACTIONS (2)
  - Conjunctivitis infective [None]
  - Off label use [None]
